FAERS Safety Report 14633627 (Version 3)
Quarter: 2019Q1

REPORT INFORMATION
  Report Type: Spontaneous
  Country: PT (occurrence: PT)
  Receive Date: 20180314
  Receipt Date: 20190109
  Transmission Date: 20190417
  Serious: Yes (Hospitalization)
  Sender: FDA-Public Use
  Company Number: PT-ROCHE-2088774

PATIENT
  Age: 73 Year
  Sex: Male

DRUGS (4)
  1. OSELTAMIVIR [Concomitant]
     Active Substance: OSELTAMIVIR
     Route: 065
  2. PIPERACILLIN/TAZOBACTAM [Concomitant]
     Active Substance: PIPERACILLIN SODIUM\TAZOBACTAM SODIUM
     Route: 065
  3. MYCOPHENOLATE MOFETIL. [Suspect]
     Active Substance: MYCOPHENOLATE MOFETIL
     Indication: MYASTHENIA GRAVIS
     Dosage: UNK UNK,UNK
     Route: 065
  4. AZATHIOPRINE. [Concomitant]
     Active Substance: AZATHIOPRINE
     Indication: PRODUCT USED FOR UNKNOWN INDICATION
     Dosage: UNK UNK,UNK
     Route: 065

REACTIONS (12)
  - Neutrophilia [Recovering/Resolving]
  - Dyspnoea [Recovering/Resolving]
  - Off label use [Unknown]
  - Rales [Recovering/Resolving]
  - Aspergillus infection [Recovering/Resolving]
  - Product use in unapproved indication [Unknown]
  - Sputum purulent [Recovering/Resolving]
  - Lung consolidation [Recovering/Resolving]
  - Wheezing [Recovering/Resolving]
  - Myalgia [Recovering/Resolving]
  - Rhonchi [Recovering/Resolving]
  - Pyrexia [Recovering/Resolving]
